FAERS Safety Report 10973998 (Version 1)
Quarter: 2015Q2

REPORT INFORMATION
  Report Type: Spontaneous
  Country: AU (occurrence: AU)
  Receive Date: 20150401
  Receipt Date: 20150401
  Transmission Date: 20150821
  Serious: Yes (Death, Other)
  Sender: FDA-Public Use
  Company Number: AU-DRREDDYS-AUS/AUS/15/0046962

PATIENT
  Age: 62 Year
  Sex: Male

DRUGS (7)
  1. TEMSIROLIMUS [Suspect]
     Active Substance: TEMSIROLIMUS
     Indication: PRODUCT USED FOR UNKNOWN INDICATION
  2. FONDAPARINUX [Concomitant]
     Active Substance: FONDAPARINUX
     Indication: PRODUCT USED FOR UNKNOWN INDICATION
  3. RANITIDINE [Concomitant]
     Active Substance: RANITIDINE\RANITIDINE HYDROCHLORIDE
     Indication: PRODUCT USED FOR UNKNOWN INDICATION
  4. GEMCITABINE [Suspect]
     Active Substance: GEMCITABINE\GEMCITABINE HYDROCHLORIDE
     Indication: PRODUCT USED FOR UNKNOWN INDICATION
  5. DEXAMETHASONE. [Concomitant]
     Active Substance: DEXAMETHASONE
     Indication: PRODUCT USED FOR UNKNOWN INDICATION
  6. DIMETINDENE [Concomitant]
     Indication: PRODUCT USED FOR UNKNOWN INDICATION
  7. ONDANSETRON [Concomitant]
     Active Substance: ONDANSETRON
     Indication: PRODUCT USED FOR UNKNOWN INDICATION

REACTIONS (8)
  - Klebsiella infection [Fatal]
  - Thrombocytopenia [Fatal]
  - Hypoxia [Fatal]
  - Sepsis [Fatal]
  - Multi-organ failure [Fatal]
  - Pyrexia [Fatal]
  - Myocardial infarction [Recovered/Resolved]
  - Pneumonia [Fatal]
